FAERS Safety Report 7600563-9 (Version None)
Quarter: 2011Q3

REPORT INFORMATION
  Report Type: 
  Country: None (occurrence: None)
  Receive Date: 20110706
  Receipt Date: 20110706
  Transmission Date: 20111222
  Serious: Yes (Life-Threatening, Hospitalization, Disabling)
  Sender: FDA-Public Use
  Company Number: None

PATIENT
  Age: 66 Year
  Sex: Female
  Weight: 104.3273 kg

DRUGS (1)
  1. LIPITOR [Suspect]
     Indication: BLOOD CHOLESTEROL
     Dosage: 20 MG 1 A DAY

REACTIONS (4)
  - MUSCLE INJURY [None]
  - MUSCLE SPASMS [None]
  - FEELING HOT [None]
  - ABDOMINAL PAIN UPPER [None]
